FAERS Safety Report 4993492-0 (Version None)
Quarter: 2006Q2

REPORT INFORMATION
  Report Type: 
  Country: None (occurrence: None)
  Receive Date: 20060505
  Receipt Date: 20060314
  Transmission Date: 20061013
  Serious: Yes (Other)
  Sender: FDA-Public Use
  Company Number: PT-AMGEN-UK172637

PATIENT
  Sex: Female
  Weight: 97 kg

DRUGS (8)
  1. PALIFERMIN [Suspect]
     Indication: MUCOSAL INFLAMMATION
     Route: 042
     Dates: start: 20051011, end: 20051021
  2. BCNU [Concomitant]
     Route: 042
     Dates: start: 20051014, end: 20051014
  3. ETOPOSIDE [Concomitant]
     Route: 042
     Dates: start: 20051015, end: 20051018
  4. CYTARABINE [Concomitant]
     Route: 042
     Dates: start: 20051015, end: 20051018
  5. MELPHALAN [Concomitant]
     Route: 042
     Dates: start: 20051019, end: 20051019
  6. ACYCLOVIR [Concomitant]
     Route: 042
     Dates: start: 20051016, end: 20051116
  7. ONDANSETRON [Concomitant]
     Route: 042
     Dates: start: 20051014, end: 20051020
  8. ITRACONAZOLE [Concomitant]
     Route: 048
     Dates: start: 20051017, end: 20051029

REACTIONS (5)
  - HYPOTENSION [None]
  - RASH PRURITIC [None]
  - SKIN OEDEMA [None]
  - SYNCOPE [None]
  - WEIGHT INCREASED [None]
